FAERS Safety Report 17825443 (Version 4)
Quarter: 2020Q3

REPORT INFORMATION
  Report Type: Spontaneous
  Country: US (occurrence: US)
  Receive Date: 20200526
  Receipt Date: 20200824
  Transmission Date: 20201102
  Serious: No
  Sender: FDA-Public Use
  Company Number: US-ACTELION-A-NJ2020-205181

PATIENT
  Sex: Female
  Weight: 79.37 kg

DRUGS (1)
  1. OPSUMIT [Suspect]
     Active Substance: MACITENTAN
     Indication: PULMONARY HYPERTENSION
     Dosage: 10 MG, QD
     Route: 048

REACTIONS (10)
  - Psychomotor hyperactivity [Unknown]
  - Sputum discoloured [Unknown]
  - Asthma [Unknown]
  - Hypersensitivity [Unknown]
  - Dyspepsia [Unknown]
  - Feeling abnormal [Unknown]
  - Feeling cold [Unknown]
  - Stress [Unknown]
  - Anxiety [Unknown]
  - Fatigue [Unknown]
